FAERS Safety Report 8913963 (Version 1)
Quarter: 2012Q4

REPORT INFORMATION
  Report Type: 
  Country: US (occurrence: US)
  Receive Date: 20121119
  Receipt Date: 20121119
  Transmission Date: 20130627
  Serious: Yes (Hospitalization, Other)
  Sender: FDA-Public Use
  Company Number: US-ELI_LILLY_AND_COMPANY-US201211004105

PATIENT
  Age: 85 Year
  Sex: Male

DRUGS (1)
  1. HUMALOG LISPRO [Suspect]
     Indication: DIABETES MELLITUS
     Dosage: 50 u, qd

REACTIONS (4)
  - Chronic obstructive pulmonary disease [Unknown]
  - Tremor [Unknown]
  - Dyspnoea [Unknown]
  - Blood carbon monoxide increased [Unknown]
